FAERS Safety Report 4320806-7 (Version None)
Quarter: 2004Q1

REPORT INFORMATION
  Report Type: 
  Country: None (occurrence: None)
  Receive Date: 20040315
  Receipt Date: 20030610
  Transmission Date: 20041129
  Serious: Yes (Other)
  Sender: FDA-Public Use
  Company Number: PHEH2003US05031

PATIENT
  Sex: Female

DRUGS (3)
  1. TRILEPTAL [Suspect]
     Dosage: ORAL
     Route: 048
  2. PAXIL [Concomitant]
  3. NEURONTIN [Concomitant]

REACTIONS (2)
  - PARTIAL SEIZURES [None]
  - UNEVALUABLE EVENT [None]
